FAERS Safety Report 26131683 (Version 1)
Quarter: 2025Q4

REPORT INFORMATION
  Report Type: Spontaneous
  Country: US (occurrence: US)
  Receive Date: 20251208
  Receipt Date: 20251208
  Transmission Date: 20260117
  Serious: Yes (Other)
  Sender: ROCHE
  Company Number: US-ROCHE-10000449500

PATIENT
  Age: 74 Year
  Sex: Female

DRUGS (2)
  1. RITUXAN [Suspect]
     Active Substance: RITUXIMAB
     Indication: Product used for unknown indication
     Route: 065
  2. DUPIXENT [Suspect]
     Active Substance: DUPILUMAB
     Indication: Nasal polyps
     Route: 058

REACTIONS (8)
  - Rheumatoid arthritis [Unknown]
  - Heart rate decreased [Unknown]
  - Supraventricular extrasystoles [Unknown]
  - Cardiac disorder [Unknown]
  - Gait disturbance [Unknown]
  - Dyspnoea [Unknown]
  - Supraventricular extrasystoles [Unknown]
  - Ventricular extrasystoles [Not Recovered/Not Resolved]

NARRATIVE: CASE EVENT DATE: 20251001
